FAERS Safety Report 23853666 (Version 3)
Quarter: 2024Q2

REPORT INFORMATION
  Report Type: Report from Study
  Country: GR (occurrence: GR)
  Receive Date: 20240514
  Receipt Date: 20240522
  Transmission Date: 20240716
  Serious: Yes (Hospitalization)
  Sender: FDA-Public Use
  Company Number: GR-ABBVIE-5758669

PATIENT
  Sex: Male

DRUGS (3)
  1. CARBIDOPA\LEVODOPA [Suspect]
     Active Substance: CARBIDOPA\LEVODOPA
     Indication: Parkinson^s disease
     Dosage: MORNING DOSE: 14.0ML; CONTINUOUS RATE: 4.5ML/H; EXTRA DOSE: 2.5ML
     Route: 050
     Dates: start: 20230221
  2. CARBIDOPA\LEVODOPA [Suspect]
     Active Substance: CARBIDOPA\LEVODOPA
     Dosage: MORNING DOSE: 14.0ML; CONTINUOUS RATE: 4.5ML/H; EXTRA DOSE: 2.5ML
     Route: 050
  3. CARBIDOPA\LEVODOPA [Suspect]
     Active Substance: CARBIDOPA\LEVODOPA
     Dosage: MORNING DOSE: 14.0ML; CONTINUOUS RATE: 4.5ML/H; EXTRA DOSE: 2.5ML
     Route: 050

REACTIONS (3)
  - Urinary tract infection [Recovered/Resolved]
  - Dyspnoea [Recovered/Resolved]
  - Laboratory test abnormal [Unknown]
